FAERS Safety Report 8845605 (Version 1)
Quarter: 2012Q4

REPORT INFORMATION
  Report Type: 
  Country: US (occurrence: US)
  Receive Date: 20121017
  Receipt Date: 20121017
  Transmission Date: 20130627
  Serious: Yes (Other)
  Sender: FDA-Public Use
  Company Number: US-ROCHE-1122473

PATIENT
  Sex: Male

DRUGS (1)
  1. NUTROPIN AQ [Suspect]
     Indication: DWARFISM
     Route: 058
     Dates: start: 19971217

REACTIONS (2)
  - Neurofibromatosis [Unknown]
  - Pyrexia [Unknown]
